FAERS Safety Report 20019866 (Version 4)
Quarter: 2021Q4

REPORT INFORMATION
  Report Type: Report from Study
  Country: ES (occurrence: None)
  Receive Date: 20211101
  Receipt Date: 20211130
  Transmission Date: 20220303
  Serious: Yes (Other)
  Sender: FDA-Public Use
  Company Number: ES-Merck Healthcare KGaA-9275072

PATIENT
  Age: 41 Year
  Sex: Male

DRUGS (6)
  1. MAVENCLAD [Suspect]
     Active Substance: CLADRIBINE
     Indication: Multiple sclerosis
     Dosage: FIRST CYCLE FIRST MONTH THERAPY
     Route: 048
     Dates: start: 20190312, end: 20210318
  2. MAVENCLAD [Suspect]
     Active Substance: CLADRIBINE
     Dosage: FIRST CYCLE SECOND MONTH
     Route: 048
     Dates: start: 20190402, end: 20190418
  3. MAVENCLAD [Suspect]
     Active Substance: CLADRIBINE
     Dosage: SECOND CYCLE FIRST MONTH
     Route: 048
     Dates: start: 20200418, end: 20200423
  4. MAVENCLAD [Suspect]
     Active Substance: CLADRIBINE
     Dosage: SECOND CYCLE SECOND MONTH
     Route: 048
     Dates: start: 20200618, end: 20200623
  5. DUPILUMAB [Concomitant]
     Active Substance: DUPILUMAB
     Indication: Skin disorder
  6. FLUTICASONE FUROATE\VILANTEROL TRIFENATATE [Concomitant]
     Active Substance: FLUTICASONE FUROATE\VILANTEROL TRIFENATATE
     Indication: Asthma

REACTIONS (7)
  - Spinal fracture [Unknown]
  - Dysplasia [Unknown]
  - Sciatica [Unknown]
  - Intervertebral disc degeneration [Unknown]
  - Mobility decreased [Unknown]
  - Coordination abnormal [Unknown]
  - Peroneal nerve palsy [Unknown]

NARRATIVE: CASE EVENT DATE: 20210101
